FAERS Safety Report 16676707 (Version 1)
Quarter: 2019Q3

REPORT INFORMATION
  Report Type: Spontaneous
  Country: US (occurrence: US)
  Receive Date: 20190807
  Receipt Date: 20190807
  Transmission Date: 20191004
  Serious: Yes (Other)
  Sender: FDA-Public Use
  Company Number: US-ACS-001473

PATIENT
  Age: 50 Year
  Sex: Female

DRUGS (1)
  1. CEFTRIAXONE. [Suspect]
     Active Substance: CEFTRIAXONE
     Indication: ENDOCARDITIS
     Dosage: 39/42 DOSES; IN TOTAL?????
     Route: 041

REACTIONS (4)
  - Blood potassium decreased [Recovered/Resolved]
  - Drug level above therapeutic [Recovered/Resolved]
  - Blood magnesium decreased [Recovered/Resolved]
  - Tetany [Recovered/Resolved]
